FAERS Safety Report 11908530 (Version 1)
Quarter: 2016Q1

REPORT INFORMATION
  Report Type: Spontaneous
  Country: FR (occurrence: FR)
  Receive Date: 20160111
  Receipt Date: 20160111
  Transmission Date: 20160526
  Serious: Yes (Disabling, Other)
  Sender: FDA-Public Use
  Company Number: FR-VIIV HEALTHCARE LIMITED-FR2016GSK002929

PATIENT

DRUGS (4)
  1. COMBIVIR [Suspect]
     Active Substance: LAMIVUDINE\ZIDOVUDINE
     Indication: PROPHYLAXIS AGAINST HIV INFECTION
     Dosage: UNK
     Route: 064
     Dates: start: 20050208
  2. RETROVIR [Suspect]
     Active Substance: ZIDOVUDINE
     Dosage: 8 MG/KG, BID
     Route: 048
     Dates: start: 20051008, end: 20051104
  3. VIRAMUNE [Suspect]
     Active Substance: NEVIRAPINE
     Indication: PROPHYLAXIS AGAINST HIV INFECTION
     Dosage: UNK
     Route: 064
     Dates: start: 20050208
  4. RETROVIR [Suspect]
     Active Substance: ZIDOVUDINE
     Indication: PROPHYLAXIS AGAINST HIV INFECTION
     Dosage: UNK UNK, BID
     Route: 064
     Dates: start: 20051007, end: 20051007

REACTIONS (6)
  - Nervous system disorder [Recovering/Resolving]
  - Tonic clonic movements [Recovering/Resolving]
  - Generalised tonic-clonic seizure [Recovering/Resolving]
  - Foetal exposure during pregnancy [Unknown]
  - Epilepsy [Recovering/Resolving]
  - Abnormal behaviour [Recovering/Resolving]

NARRATIVE: CASE EVENT DATE: 2009
